FAERS Safety Report 5793182-0 (Version None)
Quarter: 2008Q2

REPORT INFORMATION
  Report Type: 
  Country: None (occurrence: None)
  Receive Date: 20080626
  Receipt Date: 20080626
  Transmission Date: 20081010
  Serious: Yes (Hospitalization)
  Sender: FDA-Public Use
  Company Number: None

PATIENT
  Sex: Male
  Weight: 88.7 kg

DRUGS (7)
  1. TEMOZOLOMIDE [Suspect]
     Indication: GLIOBLASTOMA MULTIFORME
     Dosage: 200MG/M2 = 415MG DAILY X 5 DAYS PO
     Route: 048
     Dates: start: 20080529, end: 20080602
  2. BEVACIZUMAB, GENENTECH [Suspect]
     Indication: GLIOBLASTOMA MULTIFORME
     Dosage: 10MG/KG = 887MG Q 2 WEEKS IV
     Route: 042
     Dates: start: 20080212, end: 20080325
  3. DECADRON [Concomitant]
  4. LIPITOR [Concomitant]
  5. NEXIUM [Concomitant]
  6. KEPPRA [Concomitant]
  7. IRINOTECAN [Concomitant]

REACTIONS (6)
  - CONFUSIONAL STATE [None]
  - CONVULSION [None]
  - NUCLEAR MAGNETIC RESONANCE IMAGING ABNORMAL [None]
  - SEPSIS [None]
  - THERMAL BURN [None]
  - UNRESPONSIVE TO STIMULI [None]
